FAERS Safety Report 25637983 (Version 1)
Quarter: 2025Q3

REPORT INFORMATION
  Report Type: Spontaneous
  Country: CA (occurrence: CA)
  Receive Date: 20250804
  Receipt Date: 20250804
  Transmission Date: 20251020
  Serious: Yes (Hospitalization, Other)
  Sender: PFIZER
  Company Number: CA-PFIZER INC-202500154215

PATIENT
  Age: 79 Year
  Sex: Male

DRUGS (8)
  1. VYNDAQEL [Suspect]
     Active Substance: TAFAMIDIS MEGLUMINE
     Indication: Cardiac amyloidosis
     Dosage: 20 MG, 4X/DAY
     Route: 048
     Dates: start: 20220628
  2. ATORVASTATIN CALCIUM [Concomitant]
     Active Substance: ATORVASTATIN CALCIUM
  3. BISOPROLOL FUMARATE [Concomitant]
     Active Substance: BISOPROLOL FUMARATE
  4. FUROSEMIDE [Concomitant]
     Active Substance: FUROSEMIDE
  5. ENTRESTO [Concomitant]
     Active Substance: SACUBITRIL\VALSARTAN
  6. ASPIRIN [Concomitant]
     Active Substance: ASPIRIN
  7. SPIRONOLACTONE [Concomitant]
     Active Substance: SPIRONOLACTONE
  8. XIGDUO XR [Concomitant]
     Active Substance: DAPAGLIFLOZIN PROPANEDIOL\METFORMIN HYDROCHLORIDE

REACTIONS (23)
  - Pulmonary hypertension [Unknown]
  - Troponin increased [Unknown]
  - Gout [Unknown]
  - Peripheral swelling [Unknown]
  - Joint swelling [Unknown]
  - Mitral valve incompetence [Unknown]
  - Mitral valve thickening [Unknown]
  - Ventricular hypokinesia [Unknown]
  - Neutrophil count increased [Unknown]
  - Platelet count increased [Unknown]
  - Glycosylated haemoglobin increased [Unknown]
  - Lipoprotein increased [Unknown]
  - N-terminal prohormone brain natriuretic peptide increased [Unknown]
  - C-reactive protein increased [Unknown]
  - Cardiac septal hypertrophy [Unknown]
  - Left atrial dilatation [Unknown]
  - Global longitudinal strain abnormal [Unknown]
  - Ventricular hypertrophy [Unknown]
  - Left ventricular dysfunction [Unknown]
  - Diastolic dysfunction [Unknown]
  - Right ventricular dilatation [Unknown]
  - Right ventricular hypertrophy [Unknown]
  - Aortic valve sclerosis [Unknown]

NARRATIVE: CASE EVENT DATE: 20230801
